FAERS Safety Report 7581742-6 (Version None)
Quarter: 2011Q2

REPORT INFORMATION
  Report Type: 
  Country: None (occurrence: None)
  Receive Date: 20110629
  Receipt Date: 20110614
  Transmission Date: 20111010
  Serious: Yes (Hospitalization)
  Sender: FDA-Public Use
  Company Number: HU-BAYER-2011-054708

PATIENT
  Age: 72 Year
  Sex: Male
  Weight: 73 kg

DRUGS (9)
  1. ATORVASTATIN [Concomitant]
  2. ACETYLSALICYLIC ACID SRT [Suspect]
     Indication: ACUTE CORONARY SYNDROME
  3. RIVAROXABAN [Interacting]
     Dosage: TABLET
     Route: 048
     Dates: start: 20100705, end: 20110602
  4. METFORMIN HCL [Concomitant]
  5. INDAPAMIDE [Concomitant]
  6. RIVAROXABAN [Interacting]
     Indication: ACUTE CORONARY SYNDROME
     Dosage: TABLET
     Route: 048
     Dates: start: 20100704, end: 20100704
  7. BISOPROLOL FUMARATE [Concomitant]
  8. CLOPIDOGREL [Interacting]
     Indication: ACUTE CORONARY SYNDROME
     Dates: end: 20110610
  9. PERINDOPRIL ERBUMINE [Concomitant]

REACTIONS (2)
  - HAEMATURIA [None]
  - URINARY RETENTION [None]
